FAERS Safety Report 21931254 (Version 1)
Quarter: 2023Q1

REPORT INFORMATION
  Report Type: Spontaneous
  Country: CN (occurrence: CN)
  Receive Date: 20230131
  Receipt Date: 20230131
  Transmission Date: 20230417
  Serious: Yes (Other)
  Sender: FDA-Public Use
  Company Number: CN-ELI_LILLY_AND_COMPANY-CN202301007901

PATIENT
  Age: 90 Year
  Sex: Male

DRUGS (6)
  1. BARICITINIB [Suspect]
     Active Substance: BARICITINIB
     Indication: Pneumonia viral
     Dosage: 1 DOSAGE FORM, DAILY
     Route: 048
     Dates: start: 20230108, end: 20230109
  2. BARICITINIB [Suspect]
     Active Substance: BARICITINIB
     Dosage: 2 DOSAGE FORM, DAILY
     Route: 048
     Dates: start: 20230110, end: 20230111
  3. PIPERACILLIN SODIUM\TAZOBACTAM SODIUM [Concomitant]
     Active Substance: PIPERACILLIN SODIUM\TAZOBACTAM SODIUM
     Indication: Infection
  4. DOXOFYLLINE [Concomitant]
     Active Substance: DOXOFYLLINE
     Indication: Spasmodic dysphonia
  5. DOXOFYLLINE [Concomitant]
     Active Substance: DOXOFYLLINE
     Indication: Asthma
  6. DOXOFYLLINE [Concomitant]
     Active Substance: DOXOFYLLINE
     Indication: Supplementation therapy

REACTIONS (6)
  - Venous thrombosis [Unknown]
  - Pleural effusion [Unknown]
  - Pneumonia viral [Unknown]
  - Pulmonary embolism [Recovering/Resolving]
  - Myocardial injury [Unknown]
  - Off label use [Unknown]

NARRATIVE: CASE EVENT DATE: 20230111
